FAERS Safety Report 13239849 (Version 3)
Quarter: 2017Q2

REPORT INFORMATION
  Report Type: Spontaneous
  Country: BR (occurrence: BR)
  Receive Date: 20170216
  Receipt Date: 20170508
  Transmission Date: 20170830
  Serious: Yes (Life-Threatening, Hospitalization, Other)
  Sender: FDA-Public Use
  Company Number: BR-ASTRAZENECA-2017SE15231

PATIENT
  Age: 22724 Day
  Sex: Female
  Weight: 80 kg

DRUGS (13)
  1. ULTRAVIST [Concomitant]
     Active Substance: IOPROMIDE
     Dosage: 93.45 G
     Route: 042
     Dates: start: 20170112, end: 20170113
  2. OMEPRAZOLE. [Suspect]
     Active Substance: OMEPRAZOLE
     Route: 048
  3. DIMORF [Concomitant]
     Active Substance: MORPHINE SULFATE
     Dosage: 1 MG/ML, 2 MG
     Route: 042
     Dates: start: 20170112, end: 20170120
  4. CRESTOR [Suspect]
     Active Substance: ROSUVASTATIN CALCIUM
     Route: 048
     Dates: start: 20170111, end: 20170121
  5. CLEXANE [Concomitant]
     Active Substance: ENOXAPARIN SODIUM
     Dosage: 40 MG/0.4 ML
     Route: 058
     Dates: start: 20170112, end: 20170119
  6. FENTANEST [Concomitant]
     Active Substance: FENTANYL CITRATE
     Dosage: 0.05 MG/ML
     Route: 042
     Dates: start: 20170112, end: 20170120
  7. FRONTAL [Concomitant]
     Active Substance: ALPRAZOLAM
     Dates: start: 20170111, end: 20170113
  8. MOTILIUM [Concomitant]
     Active Substance: DOMPERIDONE
     Dosage: 30MG
     Route: 048
     Dates: start: 20170111, end: 20170113
  9. NEXIUM [Suspect]
     Active Substance: ESOMEPRAZOLE MAGNESIUM
     Route: 048
     Dates: start: 20170112, end: 20170112
  10. LEXAPRO [Concomitant]
     Active Substance: ESCITALOPRAM OXALATE
     Route: 048
     Dates: start: 20170111, end: 20170113
  11. ACETYLSALICYLIC ACID [Concomitant]
     Active Substance: ASPIRIN
  12. FLUIMUCIL [Concomitant]
     Active Substance: ACETYLCYSTEINE
     Dosage: 600 MG, 1.2 G
     Route: 048
     Dates: start: 20170112, end: 20170113
  13. FRONTAL [Concomitant]
     Active Substance: ALPRAZOLAM
     Dates: start: 20170111, end: 20170121

REACTIONS (4)
  - Erythema [Recovered/Resolved]
  - Laryngeal oedema [Recovered/Resolved]
  - Drug hypersensitivity [Unknown]
  - Sinus bradycardia [Recovered/Resolved]

NARRATIVE: CASE EVENT DATE: 20170111
